FAERS Safety Report 9250790 (Version 1)
Quarter: 2013Q1

REPORT INFORMATION
  Report Type: Spontaneous
  Country: US (occurrence: None)
  Receive Date: 20130305
  Receipt Date: 20130305
  Transmission Date: 20140127
  Serious: Yes (Other)
  Sender: FDA-Public Use
  Company Number: 163-21880-12082946

PATIENT
  Age: 70 Year
  Sex: Female

DRUGS (4)
  1. REVLIMID [Suspect]
     Indication: PLASMA CELL MYELOMA
     Dosage: 14 IN 14 D
     Route: 048
     Dates: start: 20120813
  2. DEXAMETHASONE (DEXAMETHASONE) [Concomitant]
  3. SIMVASTATIN (SIMVASTATIN) [Concomitant]
  4. FENTANYL (FENTANYL) [Concomitant]

REACTIONS (2)
  - Syncope [None]
  - Dizziness [None]
